FAERS Safety Report 10563227 (Version 1)
Quarter: 2014Q4

REPORT INFORMATION
  Report Type: Spontaneous
  Country: US (occurrence: None)
  Receive Date: 20141103
  Receipt Date: 20141103
  Transmission Date: 20150529
  Serious: No
  Sender: FDA-Public Use
  Company Number: None

PATIENT
  Age: 56 Year
  Sex: Female
  Weight: 136.08 kg

DRUGS (1)
  1. LEVAQUIN [Suspect]
     Active Substance: LEVOFLOXACIN
     Indication: PNEUMONIA LEGIONELLA
     Route: 042
     Dates: start: 20120527, end: 20120606

REACTIONS (10)
  - Coma [None]
  - Dialysis [None]
  - Cataract [None]
  - Myalgia [None]
  - Septic shock [None]
  - Arthralgia [None]
  - Insomnia [None]
  - Rash [None]
  - Depression [None]
  - Back pain [None]

NARRATIVE: CASE EVENT DATE: 20120527
